FAERS Safety Report 15505349 (Version 9)
Quarter: 2019Q2

REPORT INFORMATION
  Report Type: Report from Study
  Country: CN (occurrence: CN)
  Receive Date: 20181016
  Receipt Date: 20190617
  Transmission Date: 20190711
  Serious: Yes (Other)
  Sender: FDA-Public Use
  Company Number: CN-ROCHE-2024328

PATIENT
  Age: 54 Year
  Sex: Male
  Weight: 87 kg

DRUGS (1)
  1. AVASTIN [Suspect]
     Active Substance: BEVACIZUMAB
     Indication: COLORECTAL CANCER
     Route: 041
     Dates: start: 20170510

REACTIONS (14)
  - Chest pain [Unknown]
  - Hypertension [Unknown]
  - Gastritis [Unknown]
  - Hyperaemia [Unknown]
  - Chest discomfort [Unknown]
  - Hypoaesthesia [Unknown]
  - Gastric haemorrhage [Unknown]
  - Gastritis erosive [Unknown]
  - Nasopharyngitis [Unknown]
  - Dyspnoea [Unknown]
  - Protein urine present [Unknown]
  - Mouth haemorrhage [Unknown]
  - Nasal congestion [Unknown]
  - Protein total increased [Recovering/Resolving]

NARRATIVE: CASE EVENT DATE: 201710
